FAERS Safety Report 8956036 (Version 2)
Quarter: 2012Q4

REPORT INFORMATION
  Report Type: 
  Country: US (occurrence: US)
  Receive Date: 20121210
  Receipt Date: 20121213
  Transmission Date: 20130627
  Serious: Yes (Hospitalization)
  Sender: FDA-Public Use
  Company Number: US-BAYER-2012-128026

PATIENT
  Age: 17 Year
  Sex: Female

DRUGS (5)
  1. YASMIN [Suspect]
     Indication: BIRTH CONTROL
  2. OCELLA [Suspect]
  3. ANTIBIOTICS [Concomitant]
  4. FLONASE [Concomitant]
     Dosage: 2 puff(s), PRN
     Dates: start: 20090119
  5. SOLODYN [Concomitant]
     Dosage: UNK
     Dates: start: 20090119

REACTIONS (1)
  - Pulmonary embolism [Recovered/Resolved]
